FAERS Safety Report 5561176-6 (Version None)
Quarter: 2007Q4

REPORT INFORMATION
  Report Type: 
  Country: None (occurrence: None)
  Receive Date: 20071215
  Receipt Date: 20071029
  Transmission Date: 20080405
  Serious: No
  Sender: FDA-Public Use
  Company Number: US-AMGEN-KDL250302

PATIENT
  Sex: Female

DRUGS (2)
  1. ENBREL [Suspect]
     Indication: RHEUMATOID ARTHRITIS
     Route: 058
     Dates: start: 20060101
  2. METHOTREXATE [Concomitant]
     Dates: start: 20050101

REACTIONS (7)
  - BENIGN BONE NEOPLASM [None]
  - EXOSTOSIS [None]
  - INJECTION SITE IRRITATION [None]
  - INJECTION SITE PAIN [None]
  - NEUROMA [None]
  - PAIN IN EXTREMITY [None]
  - SPHENOID SINUS OPERATION [None]
